FAERS Safety Report 6899321-2 (Version None)
Quarter: 2010Q3

REPORT INFORMATION
  Report Type: 
  Country: None (occurrence: None)
  Receive Date: 20100802
  Receipt Date: 20100720
  Transmission Date: 20110219
  Serious: Yes (Hospitalization)
  Sender: FDA-Public Use
  Company Number: ES-MYLANLABS-2010S1012926

PATIENT
  Age: 75 Year
  Sex: Female

DRUGS (2)
  1. DOXYCYCLINE [Suspect]
     Indication: DEVICE RELATED INFECTION
     Route: 048
  2. LEVOFLOXACIN [Concomitant]
     Indication: DEVICE RELATED INFECTION
     Route: 048
     Dates: start: 20080401

REACTIONS (1)
  - PANCREATITIS ACUTE [None]
